FAERS Safety Report 6078078-1 (Version None)
Quarter: 2009Q1

REPORT INFORMATION
  Report Type: 
  Country: None (occurrence: None)
  Receive Date: 20090213
  Receipt Date: 20090209
  Transmission Date: 20090719
  Serious: Yes (Other)
  Sender: FDA-Public Use
  Company Number: US-ASTRAZENECA-2009UW03667

PATIENT
  Age: 49 Year
  Sex: Female
  Weight: 113.4 kg

DRUGS (7)
  1. CRESTOR [Suspect]
     Route: 048
     Dates: end: 20090101
  2. MICARDIS HCT [Concomitant]
  3. CLONIDINE HCL [Concomitant]
  4. SULAR [Concomitant]
  5. DIAZIDE [Concomitant]
  6. BUSPAR [Concomitant]
  7. SYNTHROID [Concomitant]

REACTIONS (2)
  - ARTHRALGIA [None]
  - PAIN [None]
